FAERS Safety Report 9493542 (Version 1)
Quarter: 2013Q3

REPORT INFORMATION
  Report Type: Spontaneous
  Country: US (occurrence: US)
  Receive Date: 20130902
  Receipt Date: 20130902
  Transmission Date: 20140515
  Serious: No
  Sender: FDA-Public Use
  Company Number: US-PFIZER INC-2013252359

PATIENT
  Age: 45 Year
  Sex: Male
  Weight: 75.74 kg

DRUGS (2)
  1. GABAPENTIN [Suspect]
     Indication: TRIGEMINAL NERVE DISORDER
     Dosage: 600 MG, 4X/DAY
     Route: 048
     Dates: start: 2008
  2. OMEPRAZOLE [Concomitant]
     Indication: ABDOMINAL PAIN UPPER
     Dosage: 40 MG, 1X/DAY

REACTIONS (1)
  - Vision blurred [Unknown]
